FAERS Safety Report 6093779-7 (Version None)
Quarter: 2009Q1

REPORT INFORMATION
  Report Type: 
  Country: None (occurrence: None)
  Receive Date: 20090226
  Receipt Date: 20090223
  Transmission Date: 20090719
  Serious: Yes (Hospitalization)
  Sender: FDA-Public Use
  Company Number: US-KINGPHARMUSA00001-K200900180

PATIENT
  Age: 76 Year
  Sex: Male

DRUGS (10)
  1. ALTACE [Suspect]
     Indication: HYPERTENSION
     Dosage: 2.5 MG, QD
     Route: 048
     Dates: start: 20080801, end: 20090128
  2. ALTACE [Suspect]
     Dosage: 2.5 MG, QD
     Route: 048
     Dates: start: 20090130
  3. LASIX [Suspect]
     Indication: CARDIAC FAILURE
     Dosage: ^250^ MG, QD
     Route: 048
     Dates: start: 20080801
  4. ESIDREX                            /00022001/ [Suspect]
     Indication: HYPERTENSION
     Dosage: 12.5 MG, QD
     Route: 048
     Dates: start: 20070101, end: 20090128
  5. PREVISCAN                          /00261401/ [Concomitant]
     Indication: ATRIAL FIBRILLATION
     Dosage: 20 MG, QD
     Route: 048
     Dates: start: 20080801
  6. CORDARONE [Concomitant]
     Indication: ATRIAL FIBRILLATION
     Dosage: 200 MG, UNK
     Route: 048
     Dates: start: 20080801
  7. CARDENSIEL [Concomitant]
     Dosage: 10 MG, UNK
     Route: 048
     Dates: start: 20080801
  8. DIFFU K [Concomitant]
     Dosage: 1200 MG, UNK
     Route: 048
     Dates: start: 20080801
  9. MOPRAL                             /00661201/ [Concomitant]
     Indication: GASTROOESOPHAGEAL REFLUX DISEASE
     Dosage: 20 MG, UNK
     Route: 048
     Dates: start: 20080801
  10. PERMIXON                           /00833501/ [Concomitant]
     Indication: MICTURITION DISORDER
     Dosage: 320 MG, UNK
     Route: 048
     Dates: start: 20070101

REACTIONS (6)
  - CARDIAC FAILURE [None]
  - FALL [None]
  - HEPATOJUGULAR REFLUX [None]
  - OEDEMA PERIPHERAL [None]
  - RENAL FAILURE ACUTE [None]
  - RHABDOMYOLYSIS [None]
